FAERS Safety Report 22053988 (Version 3)
Quarter: 2023Q2

REPORT INFORMATION
  Report Type: Spontaneous
  Country: TR (occurrence: TR)
  Receive Date: 20230302
  Receipt Date: 20230504
  Transmission Date: 20230722
  Serious: Yes (Hospitalization, Congenital Anomaly, Other)
  Sender: FDA-Public Use
  Company Number: TR-NOVOPROD-1029504

PATIENT
  Sex: Male
  Weight: 3.03 kg

DRUGS (1)
  1. LEVEMIR [Suspect]
     Active Substance: INSULIN DETEMIR
     Indication: Gestational diabetes
     Dosage: 22 IU, QD
     Route: 064
     Dates: end: 20221228

REACTIONS (3)
  - Respiratory disorder neonatal [Recovered/Resolved]
  - Atrial septal defect [Not Recovered/Not Resolved]
  - Foetal exposure during pregnancy [Recovered/Resolved]

NARRATIVE: CASE EVENT DATE: 20221228
